FAERS Safety Report 4536091-7 (Version None)
Quarter: 2004Q4

REPORT INFORMATION
  Report Type: 
  Country: None (occurrence: None)
  Receive Date: 20041214
  Receipt Date: 20041019
  Transmission Date: 20050328
  Serious: Yes (Life-Threatening)
  Sender: FDA-Public Use
  Company Number: 2004237143US

PATIENT
  Sex: Female

DRUGS (2)
  1. XANAX [Suspect]
     Dosage: 1 MG, PT TOOK 10 TABLETS
  2. WELLBUTRIN [Suspect]
     Indication: DEPRESSION
     Dosage: 150 MG, PT TOOK 6 TABLETS

REACTIONS (2)
  - CONFUSIONAL STATE [None]
  - OVERDOSE [None]
